FAERS Safety Report 8463328 (Version 3)
Quarter: 2013Q2

REPORT INFORMATION
  Report Type: Spontaneous
  Country: US (occurrence: US)
  Receive Date: 20120316
  Receipt Date: 20130405
  Transmission Date: 20140414
  Serious: Yes (Other)
  Sender: FDA-Public Use
  Company Number: US-ROCHE-1047422

PATIENT
  Age: 15 Year
  Sex: Male
  Weight: 81.72 kg

DRUGS (2)
  1. ACCUTANE [Suspect]
     Indication: ACNE
     Route: 065
     Dates: start: 1986, end: 1987
  2. ACCUTANE [Suspect]
     Route: 065
     Dates: end: 19880316

REACTIONS (10)
  - Colitis ischaemic [Unknown]
  - Inflammatory bowel disease [Unknown]
  - Depression [Not Recovered/Not Resolved]
  - Injury [Unknown]
  - Colitis ulcerative [Unknown]
  - Mental disorder [Unknown]
  - Irritable bowel syndrome [Unknown]
  - Acne [Unknown]
  - Dry skin [Unknown]
  - Hepatic enzyme increased [Unknown]
